FAERS Safety Report 12971103 (Version 2)
Quarter: 2016Q4

REPORT INFORMATION
  Report Type: Spontaneous
  Country: US (occurrence: US)
  Receive Date: 20161123
  Receipt Date: 20161128
  Transmission Date: 20170207
  Serious: No
  Sender: FDA-Public Use
  Company Number: US-JAZZ-2016-US-019007

PATIENT
  Sex: Female

DRUGS (28)
  1. XYREM [Suspect]
     Active Substance: SODIUM OXYBATE
     Indication: INSOMNIA
     Dosage: 2.25 G, BID
     Route: 048
     Dates: start: 201605, end: 201605
  2. LEVOTHYROXINE. [Concomitant]
     Active Substance: LEVOTHYROXINE
  3. LYRICA [Concomitant]
     Active Substance: PREGABALIN
  4. MELATONIN [Concomitant]
     Active Substance: MELATONIN
  5. FENTANYL. [Concomitant]
     Active Substance: FENTANYL
  6. XYREM [Suspect]
     Active Substance: SODIUM OXYBATE
     Dosage: DOSE ADJUSTMENTS
     Route: 048
     Dates: start: 201605, end: 201606
  7. SODIUM CHLORIDE. [Concomitant]
     Active Substance: SODIUM CHLORIDE
  8. HALOPERIDOL DECAN [Concomitant]
  9. FOLIC ACID. [Concomitant]
     Active Substance: FOLIC ACID
  10. MULTIVITAMINS                      /00116001/ [Concomitant]
  11. VITAMIN D3 [Concomitant]
     Active Substance: CHOLECALCIFEROL
  12. AMANTADINE [Concomitant]
     Active Substance: AMANTADINE
  13. NICORETTE [Concomitant]
     Active Substance: NICOTINE
  14. OXYCONTIN [Concomitant]
     Active Substance: OXYCODONE HYDROCHLORIDE
  15. XANAX [Concomitant]
     Active Substance: ALPRAZOLAM
  16. OXYCODONE HYDROCHLORIDE. [Concomitant]
     Active Substance: OXYCODONE HYDROCHLORIDE
  17. REMERON [Concomitant]
     Active Substance: MIRTAZAPINE
  18. TEMAZEPAM. [Concomitant]
     Active Substance: TEMAZEPAM
  19. VITAMIN B12 [Concomitant]
     Active Substance: CYANOCOBALAMIN
  20. SEROQUEL [Concomitant]
     Active Substance: QUETIAPINE FUMARATE
  21. SOMA [Concomitant]
     Active Substance: CARISOPRODOL
  22. BIOTIN [Concomitant]
     Active Substance: BIOTIN
  23. FLUORODEOXYGLUCOSE 18F [Concomitant]
  24. BENZTROPINE [Concomitant]
     Active Substance: BENZTROPINE
  25. XYREM [Suspect]
     Active Substance: SODIUM OXYBATE
     Dosage: 4.5 G, BID
     Route: 048
     Dates: start: 201606
  26. CYANOCOBALAMIN. [Concomitant]
     Active Substance: CYANOCOBALAMIN
  27. FIXMYSKIN HEALING BALM VANILLA FRAGRANCE [Concomitant]
     Active Substance: HYDROCORTISONE
  28. SONATA                             /00061001/ [Concomitant]

REACTIONS (1)
  - Hospice care [Unknown]
